FAERS Safety Report 7718415-2 (Version None)
Quarter: 2011Q3

REPORT INFORMATION
  Report Type: 
  Country: None (occurrence: None)
  Receive Date: 20110830
  Receipt Date: 20110823
  Transmission Date: 20111222
  Serious: No
  Sender: FDA-Public Use
  Company Number: US-PFIZER INC-2011195463

PATIENT
  Sex: Female
  Weight: 83.9 kg

DRUGS (1)
  1. FLUCONAZOLE [Suspect]
     Indication: FUNGAL INFECTION
     Dosage: 200 MG ONE EVERY ALTERNATE DAY
     Route: 048
     Dates: start: 20101101, end: 20110812

REACTIONS (3)
  - DRUG INEFFECTIVE [None]
  - GLOSSODYNIA [None]
  - URTICARIA [None]
